FAERS Safety Report 19928905 (Version 1)
Quarter: 2021Q4

REPORT INFORMATION
  Report Type: Spontaneous
  Country: CN (occurrence: CN)
  Receive Date: 20211007
  Receipt Date: 20211007
  Transmission Date: 20220303
  Serious: Yes (Other)
  Sender: FDA-Public Use
  Company Number: CN-NOVARTISPH-NVSC2021CN228256

PATIENT
  Age: 36 Week
  Sex: Female
  Weight: 2.89 kg

DRUGS (4)
  1. DICLOFENAC [Suspect]
     Active Substance: DICLOFENAC
     Indication: Foetal exposure during pregnancy
     Dosage: MATERNAL DOSE: UNK
     Route: 064
  2. CEFTAZIDIME [Suspect]
     Active Substance: CEFTAZIDIME
     Indication: Foetal exposure during pregnancy
     Dosage: MATERNAL DOSE: 2 G, 1D
     Route: 064
  3. OSELTAMIVIR [Suspect]
     Active Substance: OSELTAMIVIR
     Indication: Foetal exposure during pregnancy
     Dosage: MATERNAL DOSE: 75 MG, 1D
     Route: 064
  4. METHYLPREDNISOLONE [Suspect]
     Active Substance: METHYLPREDNISOLONE
     Indication: Foetal exposure during pregnancy
     Dosage: MATERNAL DOSE: 20 MG, 1D
     Route: 064

REACTIONS (3)
  - Neonatal pneumonia [Recovered/Resolved]
  - Lymphopenia [Recovered/Resolved]
  - Foetal exposure during pregnancy [Unknown]
